FAERS Safety Report 23214522 (Version 1)
Quarter: 2023Q4

REPORT INFORMATION
  Report Type: Spontaneous
  Country: US (occurrence: US)
  Receive Date: 20231121
  Receipt Date: 20231121
  Transmission Date: 20240109
  Serious: No
  Sender: FDA-Public Use
  Company Number: US-LUNDBECK-DKLU3069077

PATIENT
  Sex: Female

DRUGS (2)
  1. NORTHERA [Suspect]
     Active Substance: DROXIDOPA
     Indication: Parkinson^s disease
     Route: 048
     Dates: start: 202305
  2. AIMOVIG [Concomitant]
     Active Substance: ERENUMAB-AOOE
     Indication: Product used for unknown indication
     Route: 065

REACTIONS (8)
  - Gastrointestinal disorder [Unknown]
  - Fatigue [Unknown]
  - Lethargy [Unknown]
  - Tachyphrenia [Unknown]
  - Disturbance in attention [Unknown]
  - Cough [Unknown]
  - Throat irritation [Unknown]
  - Insomnia [Unknown]
